FAERS Safety Report 7543777-9 (Version None)
Quarter: 2011Q2

REPORT INFORMATION
  Report Type: 
  Country: None (occurrence: None)
  Receive Date: 20110613
  Receipt Date: 20110525
  Transmission Date: 20111010
  Serious: No
  Sender: FDA-Public Use
  Company Number: US-B.I. PHARMACEUTICALS,INC./RIDGEFIELD-2011-BP-12257BP

PATIENT
  Sex: Male

DRUGS (10)
  1. SPIRIVA [Suspect]
     Indication: DYSPNOEA
     Dosage: 18 MCG
     Route: 055
     Dates: start: 20090101
  2. VICODIN [Concomitant]
     Indication: BACK PAIN
  3. PREDNISONE [Concomitant]
     Indication: DYSPNOEA
  4. PAROXETINE HYDROCHLORIDE [Concomitant]
     Indication: ANGER
  5. ALBUTEROL SULFATE AUTOHALER [Concomitant]
     Indication: DYSPNOEA
  6. SPIRIVA [Suspect]
  7. NIFEDIPINE [Concomitant]
     Indication: OESOPHAGEAL STENOSIS
  8. TAMSULOSIN HCL [Concomitant]
  9. CILOSTAZOL [Concomitant]
  10. OMEPRAZOLE [Concomitant]

REACTIONS (1)
  - DYSPNOEA [None]
